FAERS Safety Report 17466124 (Version 1)
Quarter: 2020Q1

REPORT INFORMATION
  Report Type: Spontaneous
  Country: FI (occurrence: FI)
  Receive Date: 20200227
  Receipt Date: 20200227
  Transmission Date: 20200409
  Serious: Yes (Hospitalization)
  Sender: FDA-Public Use
  Company Number: FI-ASTRAZENECA-2020SE24932

PATIENT
  Age: 72 Year
  Sex: Male

DRUGS (6)
  1. FASENRA [Suspect]
     Active Substance: BENRALIZUMAB
     Indication: ASTHMA
     Route: 058
     Dates: start: 20191203, end: 20200128
  2. SYMBICORT TURBUHALER FORTE [Concomitant]
     Route: 055
  3. CANDEMOX [Concomitant]
     Active Substance: CANDESARTAN CILEXETIL
     Route: 048
  4. MONTELUKAST ACCORD [Concomitant]
     Active Substance: MONTELUKAST\MONTELUKAST SODIUM
     Route: 048
  5. HYDROCORTISON [Concomitant]
     Active Substance: HYDROCORTISONE
     Route: 048
  6. ATORVASTATIN ORION [Concomitant]
     Active Substance: ATORVASTATIN CALCIUM
     Route: 048

REACTIONS (1)
  - Pulmonary embolism [Not Recovered/Not Resolved]

NARRATIVE: CASE EVENT DATE: 20200128
